FAERS Safety Report 11303059 (Version 1)
Quarter: 2015Q3

REPORT INFORMATION
  Report Type: Spontaneous
  Country: US (occurrence: None)
  Receive Date: 20150723
  Receipt Date: 20150723
  Transmission Date: 20151125
  Serious: No
  Sender: FDA-Public Use
  Company Number: None

PATIENT
  Age: 43 Year
  Sex: Female

DRUGS (2)
  1. OTEZLA [Suspect]
     Active Substance: APREMILAST
     Indication: PSORIASIS
     Dosage: 1 PILL
     Route: 048
     Dates: start: 20150411, end: 20150530
  2. STELARA [Concomitant]
     Active Substance: USTEKINUMAB

REACTIONS (1)
  - Migraine [None]

NARRATIVE: CASE EVENT DATE: 20150530
